FAERS Safety Report 9929902 (Version 1)
Quarter: 2014Q1

REPORT INFORMATION
  Report Type: Spontaneous
  Country: US (occurrence: US)
  Receive Date: 20140227
  Receipt Date: 20140227
  Transmission Date: 20141002
  Serious: Yes (Hospitalization, Other)
  Sender: FDA-Public Use
  Company Number: US-ELI_LILLY_AND_COMPANY-US201402007049

PATIENT
  Age: 62 Year
  Sex: Male
  Weight: 95.24 kg

DRUGS (1)
  1. HUMALOG LISPRO [Suspect]
     Indication: PRODUCT USED FOR UNKNOWN INDICATION
     Dosage: UNK
     Route: 058

REACTIONS (3)
  - Diabetic ketoacidotic hyperglycaemic coma [Recovered/Resolved]
  - Diabetic ketoacidotic hyperglycaemic coma [Recovered/Resolved]
  - Somnolence [Recovered/Resolved]
